FAERS Safety Report 21782912 (Version 3)
Quarter: 2023Q1

REPORT INFORMATION
  Report Type: Report from Study
  Country: US (occurrence: US)
  Receive Date: 20221227
  Receipt Date: 20230227
  Transmission Date: 20230417
  Serious: Yes (Hospitalization)
  Sender: FDA-Public Use
  Company Number: US-TAKEDA-2022TUS098220

PATIENT
  Sex: Male

DRUGS (3)
  1. MARIBAVIR [Suspect]
     Active Substance: MARIBAVIR
     Indication: Post procedural infection
     Dosage: 400 MILLIGRAM, BID
     Route: 048
     Dates: start: 20221205
  2. MARIBAVIR [Suspect]
     Active Substance: MARIBAVIR
     Indication: Cytomegalovirus infection
     Dosage: 400 MILLIGRAM, BID
     Route: 048
     Dates: start: 20221228
  3. VALCYTE [Concomitant]
     Active Substance: VALGANCICLOVIR HYDROCHLORIDE

REACTIONS (3)
  - Hospitalisation [Unknown]
  - Alopecia [Unknown]
  - Taste disorder [Unknown]
